FAERS Safety Report 7072169-4 (Version None)
Quarter: 2010Q4

REPORT INFORMATION
  Report Type: 
  Country: None (occurrence: None)
  Receive Date: 20101029
  Receipt Date: 20100205
  Transmission Date: 20110411
  Serious: No
  Sender: FDA-Public Use
  Company Number: A0834788A

PATIENT
  Age: 82 Year
  Sex: Female

DRUGS (5)
  1. ADVAIR DISKUS 100/50 [Suspect]
     Indication: ASTHMA
     Dosage: 1PUFF PER DAY
     Route: 055
     Dates: start: 20091101
  2. PREDNISONE [Concomitant]
  3. INHALER [Concomitant]
  4. ANTIHYPERTENSIVE [Concomitant]
  5. WATER PILL [Concomitant]

REACTIONS (4)
  - DYSPNOEA [None]
  - ILL-DEFINED DISORDER [None]
  - PRODUCT QUALITY ISSUE [None]
  - WHEEZING [None]
